FAERS Safety Report 11098142 (Version 3)
Quarter: 2015Q2

REPORT INFORMATION
  Report Type: Spontaneous
  Country: JP (occurrence: JP)
  Receive Date: 20150507
  Receipt Date: 20150624
  Transmission Date: 20150821
  Serious: Yes (Hospitalization)
  Sender: FDA-Public Use
  Company Number: JP-SUCAMPO AG-SPI201500416

PATIENT
  Age: 76 Year
  Sex: Female

DRUGS (8)
  1. GASMOTIN [Concomitant]
     Active Substance: MOSAPRIDE CITRATE
     Indication: CONSTIPATION
     Dosage: UNK
     Route: 048
     Dates: start: 201210
  2. FORSENID [Concomitant]
     Indication: ABDOMINAL DISTENSION
  3. AMITIZA [Suspect]
     Active Substance: LUBIPROSTONE
     Indication: CONSTIPATION
     Dosage: 24 MCG, BID
     Route: 048
     Dates: start: 20150123, end: 20150131
  4. BIOSMIN [Concomitant]
     Indication: CONSTIPATION
     Dosage: UNK
     Route: 048
     Dates: start: 20141211
  5. BIOSMIN [Concomitant]
     Indication: ABDOMINAL DISTENSION
  6. GASMOTIN [Concomitant]
     Active Substance: MOSAPRIDE CITRATE
     Indication: ABDOMINAL DISTENSION
  7. AMITIZA [Suspect]
     Active Substance: LUBIPROSTONE
     Indication: ABDOMINAL DISTENSION
  8. FORSENID [Concomitant]
     Indication: CONSTIPATION
     Dosage: UNK
     Route: 048
     Dates: start: 201102, end: 20150205

REACTIONS (3)
  - Vomiting [Unknown]
  - Hypokalaemia [Recovered/Resolved]
  - Diarrhoea [Recovered/Resolved]

NARRATIVE: CASE EVENT DATE: 20150123
